FAERS Safety Report 23383431 (Version 1)
Quarter: 2024Q1

REPORT INFORMATION
  Report Type: Spontaneous
  Country: SA (occurrence: SA)
  Receive Date: 20240109
  Receipt Date: 20240109
  Transmission Date: 20240409
  Serious: Yes (Other)
  Sender: FDA-Public Use
  Company Number: SA-PFIZER INC-202400001656

PATIENT
  Age: 51 Year
  Sex: Female

DRUGS (2)
  1. CARBOPLATIN [Suspect]
     Active Substance: CARBOPLATIN
     Indication: Peritoneal mesothelioma malignant
     Dosage: UNK, CYCLIC
     Dates: start: 2023
  2. PEMETREXED [Suspect]
     Active Substance: PEMETREXED
     Indication: Peritoneal mesothelioma malignant
     Dosage: UNK, CYCLIC
     Dates: start: 2023

REACTIONS (6)
  - Febrile neutropenia [Unknown]
  - Nausea [Unknown]
  - Mucosal inflammation [Unknown]
  - Acute kidney injury [Recovering/Resolving]
  - Condition aggravated [Recovering/Resolving]
  - Off label use [Unknown]

NARRATIVE: CASE EVENT DATE: 20230101
